FAERS Safety Report 10923336 (Version 1)
Quarter: 2015Q1

REPORT INFORMATION
  Report Type: Report from Study
  Country: US (occurrence: US)
  Receive Date: 20150318
  Receipt Date: 20150318
  Transmission Date: 20150721
  Serious: Yes (Hospitalization, Other)
  Sender: FDA-Public Use
  Company Number: US-AMGEN-USASL2015024267

PATIENT
  Age: 73 Year
  Sex: Female

DRUGS (1)
  1. ENBREL [Suspect]
     Active Substance: ETANERCEPT
     Indication: PSORIATIC ARTHROPATHY
     Dosage: 50 MG, QWK
     Route: 065
     Dates: start: 2002, end: 20150220

REACTIONS (5)
  - Foot deformity [Not Recovered/Not Resolved]
  - Toe amputation [Recovered/Resolved]
  - Urinary tract infection [Not Recovered/Not Resolved]
  - Fall [Not Recovered/Not Resolved]
  - Wrist fracture [Not Recovered/Not Resolved]

NARRATIVE: CASE EVENT DATE: 2010
